FAERS Safety Report 9153428 (Version 2)
Quarter: 2013Q1

REPORT INFORMATION
  Report Type: Spontaneous
  Country: US (occurrence: None)
  Receive Date: 20130131
  Receipt Date: 20130207
  Transmission Date: 20140127
  Serious: Yes (Hospitalization, Other)
  Sender: FDA-Public Use
  Company Number: 2013AT000015

PATIENT
  Age: 51 Year
  Sex: Female
  Weight: 65.77 kg

DRUGS (9)
  1. ROBAXIN [Suspect]
     Indication: MUSCLE SPASMS
     Route: 048
  2. GLATIRAMER ACETATE [Suspect]
     Indication: MULTIPLE SCLEROSIS
     Dosage: 20 MG; INJECTION
     Dates: start: 20080427
  3. PRAZOSIN [Concomitant]
  4. ROPINIROLE [Concomitant]
  5. OMEPRAZOLE [Concomitant]
  6. ASPIRIN [Concomitant]
  7. CITALOPRAM HBR [Concomitant]
  8. ZIPRASIDONE [Concomitant]
  9. AMBIEN [Concomitant]

REACTIONS (3)
  - Overdose [None]
  - Suicidal ideation [None]
  - Refusal of treatment by patient [None]
